FAERS Safety Report 10412561 (Version 1)
Quarter: 2014Q2

REPORT INFORMATION
  Report Type: Spontaneous
  Country: US (occurrence: None)
  Receive Date: 20140604
  Receipt Date: 20140604
  Transmission Date: 20141212
  Serious: Yes (Other)
  Sender: FDA-Public Use
  Company Number: 20090720CINRY1054

PATIENT
  Age: 32 Year
  Sex: Female

DRUGS (13)
  1. CINRYZE [Suspect]
     Indication: HEREDITARY ANGIOEDEMA
     Dosage: (1000 UNIT, 2 IN 1 WK),INTRAVENOUS
     Route: 042
     Dates: start: 20090122
  2. CINRYZE [Suspect]
     Indication: PROPHYLAXIS
     Dosage: (1000 UNIT, 2 IN 1 WK),INTRAVENOUS
     Route: 042
     Dates: start: 20090122
  3. COMBIVENT ACTUATION AEROSOL INHALER(BREVA)(INHALANT) [Concomitant]
  4. FLUOXETINE(FLUOXETINE)(CAPSULES) [Concomitant]
  5. ADVAIR DISKUS(SERETIDE [Concomitant]
  6. PERCOCET(TYLOX /00446701/)(TABLETS) [Concomitant]
  7. OXYCONTIN(OXYCODONE HYDROCHLORIDE)(TABLETS) [Concomitant]
  8. ATROVENT HFA ACTUATION AEROSOL INHALER(IPRATROPIUM BROMIDE)(INHALANT) [Concomitant]
  9. DILAUDID(HYDROMORPHONE HYDROCHLORIDE)(TABLETS) [Concomitant]
  10. CLONAZEPAM(CLONAZEPAM) [Concomitant]
  11. WARFARIN(WARFARIN)(5 MG, TABLETS) [Concomitant]
  12. COUMADIN)WARFARIN SODIUM) [Concomitant]
  13. YASMIN [Concomitant]

REACTIONS (5)
  - Hereditary angioedema [None]
  - Nausea [None]
  - Vomiting [None]
  - Diarrhoea [None]
  - Abdominal distension [None]
